FAERS Safety Report 6921643-7 (Version None)
Quarter: 2010Q3

REPORT INFORMATION
  Report Type: 
  Country: None (occurrence: None)
  Receive Date: 20100812
  Receipt Date: 20100802
  Transmission Date: 20110219
  Serious: Yes (Hospitalization, Other)
  Sender: FDA-Public Use
  Company Number: NL-ELI_LILLY_AND_COMPANY-NL201008000642

PATIENT
  Sex: Female

DRUGS (6)
  1. CYMBALTA [Suspect]
     Dosage: UNK, UNKNOWN
     Route: 048
     Dates: start: 20100721, end: 20100730
  2. METOCLOPRAMIDE [Concomitant]
     Dosage: 20 MG, UNK
     Route: 048
     Dates: start: 20100729
  3. METOPROLOL [Concomitant]
     Dosage: 50 MG, UNKNOWN
     Route: 048
  4. DICLOFENAC /00372302/ [Concomitant]
     Dosage: 50 MG, UNKNOWN
     Route: 048
     Dates: start: 20090909
  5. PANTOPRAZOLE SODIUM [Concomitant]
     Dosage: 40 MG, UNKNOWN
     Route: 048
     Dates: start: 20090909
  6. ZOPICLON [Concomitant]
     Dosage: 7.5 D/F, UNKNOWN
     Route: 048
     Dates: start: 20070701

REACTIONS (2)
  - HYPONATRAEMIA [None]
  - RENAL IMPAIRMENT [None]
